FAERS Safety Report 4851390-7 (Version None)
Quarter: 2005Q4

REPORT INFORMATION
  Report Type: 
  Country: None (occurrence: None)
  Receive Date: 20051212
  Receipt Date: 20051205
  Transmission Date: 20060501
  Serious: Yes (Death, Hospitalization, Other)
  Sender: FDA-Public Use
  Company Number: PHBS2005TR17985

PATIENT
  Age: 35 Year
  Sex: Male

DRUGS (3)
  1. CYCLOSPORINE [Suspect]
     Indication: RENAL TRANSPLANT
     Dosage: 75 MG/D
  2. PREDNISONE [Suspect]
     Dosage: 10 MG/D
  3. IMIPENEM [Concomitant]
     Dosage: 2 G/D

REACTIONS (17)
  - BRAIN ABSCESS [None]
  - CONFUSIONAL STATE [None]
  - CONVULSION [None]
  - DIARRHOEA [None]
  - ERYTHEMA [None]
  - FATIGUE [None]
  - GRAFT VERSUS HOST DISEASE [None]
  - HEADACHE [None]
  - LOSS OF CONSCIOUSNESS [None]
  - LUNG ABSCESS [None]
  - NAUSEA [None]
  - NOCARDIOSIS [None]
  - PYREXIA [None]
  - SCROTAL ABSCESS [None]
  - TESTICULAR PAIN [None]
  - TESTICULAR SWELLING [None]
  - VOMITING [None]
